FAERS Safety Report 26166883 (Version 2)
Quarter: 2025Q4

REPORT INFORMATION
  Report Type: Report from Study
  Country: US (occurrence: US)
  Receive Date: 20251217
  Receipt Date: 20251226
  Transmission Date: 20260118
  Serious: Yes (Other)
  Sender: ACADIA PHARMACEUTICALS
  Company Number: US-ACADIA PHARMACEUTICALS INC.-ACA-2025-PIM-013207

PATIENT
  Sex: Male
  Weight: 57.143 kg

DRUGS (3)
  1. NUPLAZID [Suspect]
     Active Substance: PIMAVANSERIN TARTRATE
     Indication: Parkinson^s disease psychosis
     Dosage: 34 MILLIGRAM, QD
     Route: 048
  2. CARBIDOPA\LEVODOPA [Concomitant]
     Active Substance: CARBIDOPA\LEVODOPA
     Dosage: 1 DOSAGE FORM, QID
     Route: 048
  3. ACETAMINOPHEN [Concomitant]
     Active Substance: ACETAMINOPHEN
     Dosage: 325 MILLIGRAM, QD (AS NEEDED)
     Route: 048

REACTIONS (11)
  - Hallucination [Not Recovered/Not Resolved]
  - Resting tremor [Unknown]
  - Cogwheel rigidity [Unknown]
  - Freezing phenomenon [Unknown]
  - Dysphonia [Unknown]
  - Agitation [Unknown]
  - Paranoia [Not Recovered/Not Resolved]
  - Developmental regression [Not Recovered/Not Resolved]
  - Fatigue [Unknown]
  - Confusional state [Unknown]
  - Therapeutic product effect decreased [Not Recovered/Not Resolved]
